FAERS Safety Report 15948106 (Version 1)
Quarter: 2019Q1

REPORT INFORMATION
  Report Type: Spontaneous
  Country: HR (occurrence: HR)
  Receive Date: 20190212
  Receipt Date: 20190212
  Transmission Date: 20190417
  Serious: Yes (Hospitalization)
  Sender: FDA-Public Use
  Company Number: HR-EMD SERONO-E2B_90066320

PATIENT
  Sex: Female
  Weight: 65 kg

DRUGS (1)
  1. REBIF [Suspect]
     Active Substance: INTERFERON BETA-1A
     Indication: RELAPSING-REMITTING MULTIPLE SCLEROSIS
     Dosage: 44 MCG; 3X TJEDNO, PRE-FILLED SYRINGES
     Route: 058
     Dates: start: 201612, end: 201812

REACTIONS (6)
  - Asthenia [Recovered/Resolved]
  - Application site oedema [Recovered/Resolved]
  - Urticaria [Recovering/Resolving]
  - Application site discolouration [Recovered/Resolved]
  - Pyrexia [Recovered/Resolved]
  - Feeling hot [Recovered/Resolved]

NARRATIVE: CASE EVENT DATE: 2017
